FAERS Safety Report 4435240-9 (Version None)
Quarter: 2004Q3

REPORT INFORMATION
  Report Type: 
  Country: None (occurrence: None)
  Receive Date: 20040827
  Receipt Date: 20040812
  Transmission Date: 20050211
  Serious: Yes (Other)
  Sender: FDA-Public Use
  Company Number: JP-GLAXOSMITHKLINE-B0342696A

PATIENT
  Age: 32 Year
  Sex: Female

DRUGS (4)
  1. EPIVIR [Suspect]
     Dosage: 150MG TWICE PER DAY
     Route: 048
     Dates: start: 20040717
  2. REYATAZ [Suspect]
     Dosage: 300MG PER DAY
     Route: 048
     Dates: start: 20040717
  3. NORVIR SOFT [Suspect]
     Dosage: 100MG PER DAY
     Route: 048
     Dates: start: 20040717
  4. VIREAD [Suspect]
     Dosage: 300MG PER DAY
     Route: 048
     Dates: start: 20040717

REACTIONS (2)
  - HYPERBILIRUBINAEMIA [None]
  - NAIL DISORDER [None]
